FAERS Safety Report 22127237 (Version 2)
Quarter: 2023Q2

REPORT INFORMATION
  Report Type: Report from Study
  Country: CA (occurrence: CA)
  Receive Date: 20230322
  Receipt Date: 20230425
  Transmission Date: 20230721
  Serious: Yes (Death, Hospitalization)
  Sender: FDA-Public Use
  Company Number: CA-BEIGENE, LTD-BGN-2023-002126

PATIENT

DRUGS (3)
  1. BRUKINSA [Suspect]
     Active Substance: ZANUBRUTINIB
     Indication: Plasmablastic lymphoma
     Dosage: 80 MILLIGRAM, BID
     Route: 048
     Dates: start: 20230207
  2. BRUKINSA [Suspect]
     Active Substance: ZANUBRUTINIB
     Indication: Waldenstrom^s macroglobulinaemia
     Dosage: 320 MILLIGRAM, QD
     Route: 048
     Dates: start: 20230207
  3. PAXLOVID [Concomitant]
     Active Substance: NIRMATRELVIR\RITONAVIR
     Dosage: UNK

REACTIONS (5)
  - Death [Fatal]
  - Febrile neutropenia [Unknown]
  - Eye infection [Unknown]
  - Prescribed underdose [Unknown]
  - Off label use [Unknown]
